FAERS Safety Report 22620959 (Version 1)
Quarter: 2023Q2

REPORT INFORMATION
  Report Type: Spontaneous
  Country: US (occurrence: None)
  Receive Date: 20230616
  Receipt Date: 20230616
  Transmission Date: 20230721
  Serious: No
  Sender: FDA-Public Use
  Company Number: None

PATIENT
  Sex: Male

DRUGS (1)
  1. ABIRATERONE [Suspect]
     Active Substance: ABIRATERONE
     Dosage: FREQUENCY : DAILY;?
     Route: 048

REACTIONS (8)
  - Vitamin B12 decreased [None]
  - Red blood cell count decreased [None]
  - Blood uric acid increased [None]
  - Cyst [None]
  - Axillary mass [None]
  - Arthralgia [None]
  - Bone pain [None]
  - Pain of skin [None]
